FAERS Safety Report 21350670 (Version 6)
Quarter: 2023Q1

REPORT INFORMATION
  Report Type: Report from Study
  Country: GB (occurrence: GB)
  Receive Date: 20220919
  Receipt Date: 20230116
  Transmission Date: 20230418
  Serious: Yes (Hospitalization)
  Sender: FDA-Public Use
  Company Number: GB-UCBSA-2022039559

PATIENT
  Age: 36 Year
  Sex: Female

DRUGS (4)
  1. CERTOLIZUMAB PEGOL [Suspect]
     Active Substance: CERTOLIZUMAB PEGOL
     Indication: Rheumatoid arthritis
     Dosage: 200 MILLIGRAM, EV 2 WEEKS(QOW)
     Route: 058
     Dates: start: 20220610, end: 202208
  2. CERTOLIZUMAB PEGOL [Suspect]
     Active Substance: CERTOLIZUMAB PEGOL
     Dosage: 200 MILLIGRAM, EV 2 WEEKS(QOW)
     Route: 058
     Dates: start: 2022, end: 2022
  3. AMOXICILLIN [Concomitant]
     Active Substance: AMOXICILLIN
  4. METHOTREXATE [Concomitant]
     Active Substance: METHOTREXATE
     Indication: Product used for unknown indication

REACTIONS (6)
  - Infectious thyroiditis [Not Recovered/Not Resolved]
  - Oral herpes [Not Recovered/Not Resolved]
  - Influenza [Not Recovered/Not Resolved]
  - Rash [Not Recovered/Not Resolved]
  - Malaise [Unknown]
  - SARS-CoV-2 test negative [Unknown]

NARRATIVE: CASE EVENT DATE: 20220701
